FAERS Safety Report 6428936-0 (Version None)
Quarter: 2009Q4

REPORT INFORMATION
  Report Type: 
  Country: None (occurrence: None)
  Receive Date: 20091104
  Receipt Date: 20091104
  Transmission Date: 20100525
  Serious: Yes (Disabling, Other)
  Sender: FDA-Public Use
  Company Number: None

PATIENT
  Age: 71 Year
  Sex: Female
  Weight: 67.3 kg

DRUGS (1)
  1. LEVAQUIN [Suspect]
     Indication: SINUSITIS
     Dosage: 5 TABLETS 1/DAY ORAL
     Route: 048
     Dates: start: 20090810, end: 20090815

REACTIONS (10)
  - ARTHRALGIA [None]
  - FATIGUE [None]
  - HYPOTENSION [None]
  - JOINT SPRAIN [None]
  - JOINT SWELLING [None]
  - MUSCULOSKELETAL PAIN [None]
  - PAIN [None]
  - PARAESTHESIA [None]
  - SENSATION OF PRESSURE [None]
  - TENDON PAIN [None]
